FAERS Safety Report 21875727 (Version 1)
Quarter: 2023Q1

REPORT INFORMATION
  Report Type: Report from Study
  Country: US (occurrence: US)
  Receive Date: 20230118
  Receipt Date: 20230118
  Transmission Date: 20230417
  Serious: No
  Sender: FDA-Public Use
  Company Number: US-ABBVIE-4265328

PATIENT
  Sex: Female

DRUGS (1)
  1. HUMIRA [Suspect]
     Active Substance: ADALIMUMAB
     Indication: Uveitis
     Route: 058
     Dates: start: 20221231

REACTIONS (3)
  - Vision blurred [Not Recovered/Not Resolved]
  - Thirst [Not Recovered/Not Resolved]
  - Appetite disorder [Not Recovered/Not Resolved]
